FAERS Safety Report 16160150 (Version 1)
Quarter: 2019Q2

REPORT INFORMATION
  Report Type: Report from Study
  Country: CL (occurrence: CL)
  Receive Date: 20190404
  Receipt Date: 20190404
  Transmission Date: 20190711
  Serious: Yes (Other)
  Sender: FDA-Public Use
  Company Number: CL-ACTELION-A-US2019-188790

PATIENT
  Age: 48 Year
  Sex: Female

DRUGS (7)
  1. ACENOCOUMAROL [Concomitant]
     Active Substance: ACENOCOUMAROL
     Dosage: UNK
  2. VENTAVIS [Suspect]
     Active Substance: ILOPROST
     Indication: PULMONARY HYPERTENSION
     Dosage: 2 ML/Q3H
     Route: 055
     Dates: start: 20180920, end: 20181001
  3. SILDENAFIL. [Concomitant]
     Active Substance: SILDENAFIL
     Dosage: UNK
  4. VENTAVIS [Suspect]
     Active Substance: ILOPROST
     Dosage: 1 ML, Q4HRS
     Route: 055
     Dates: start: 20180915
  5. SPIRONOLACTONE. [Concomitant]
     Active Substance: SPIRONOLACTONE
     Dosage: UNK
  6. PLAQUENIL [Concomitant]
     Active Substance: HYDROXYCHLOROQUINE SULFATE
     Dosage: UNK
  7. ACETAMINOPHEN. [Concomitant]
     Active Substance: ACETAMINOPHEN
     Dosage: UNK

REACTIONS (11)
  - Nasal discomfort [Unknown]
  - Inappropriate schedule of product administration [Unknown]
  - Cough [Recovering/Resolving]
  - Nausea [Recovering/Resolving]
  - Quality of life decreased [Unknown]
  - Stomatitis [Unknown]
  - Speech disorder [Unknown]
  - Pyrexia [Recovering/Resolving]
  - Hypotension [Recovered/Resolved]
  - Medical device site erythema [Recovered/Resolved]
  - Vomiting [Recovering/Resolving]

NARRATIVE: CASE EVENT DATE: 20180915
